FAERS Safety Report 21294414 (Version 1)
Quarter: 2022Q3

REPORT INFORMATION
  Report Type: Report from Study
  Country: IT (occurrence: IT)
  Receive Date: 20220905
  Receipt Date: 20220905
  Transmission Date: 20221027
  Serious: Yes (Other)
  Sender: FDA-Public Use
  Company Number: IT-UCBSA-2022051547

PATIENT
  Age: 38 Year
  Sex: Male

DRUGS (2)
  1. LACOSAMIDE [Suspect]
     Active Substance: LACOSAMIDE
     Indication: Product used for unknown indication
     Dosage: 50 MG IN MORNING AND 100 MG AT NIGHT
  2. LACOSAMIDE [Suspect]
     Active Substance: LACOSAMIDE
     Dosage: 100 MILLIGRAM, ONCE DAILY IN THE EVENING

REACTIONS (5)
  - Petit mal epilepsy [Unknown]
  - Insomnia [Unknown]
  - Stress [Unknown]
  - Anxiety [Unknown]
  - Product use issue [Unknown]
